FAERS Safety Report 9613994 (Version 1)
Quarter: 2013Q4

REPORT INFORMATION
  Report Type: Other
  Country: US (occurrence: US)
  Receive Date: 20131011
  Receipt Date: 20131011
  Transmission Date: 20140711
  Serious: Yes (Other)
  Sender: FDA-Public Use
  Company Number: US-LUPIN PHARMACEUTICALS INC.-E2B_00001332

PATIENT
  Age: 38 Year
  Sex: Male
  Weight: 68.1 kg

DRUGS (2)
  1. LEVETIRACETAM TABLETS 1000MG (LEVETIRACETAM) [Suspect]
     Indication: CONVULSION
     Dates: start: 201307
  2. AMITRIPTYLINE [Concomitant]
     Indication: SLEEP DISORDER

REACTIONS (4)
  - Fall [Recovered/Resolved]
  - Product substitution issue [Not Recovered/Not Resolved]
  - Convulsion [Not Recovered/Not Resolved]
  - Drug ineffective [Not Recovered/Not Resolved]
